FAERS Safety Report 6972968-0 (Version None)
Quarter: 2010Q3

REPORT INFORMATION
  Report Type: 
  Country: None (occurrence: None)
  Receive Date: 20100909
  Receipt Date: 20100723
  Transmission Date: 20110219
  Serious: No
  Sender: FDA-Public Use
  Company Number: US-KINGPHARMUSA00001-K201000936

PATIENT
  Sex: Male

DRUGS (6)
  1. EMBEDA [Suspect]
     Indication: PAIN
     Dosage: 60 MG, QD
     Dates: start: 20100629, end: 20100722
  2. EMBEDA [Suspect]
     Dosage: 30 MG, QD
     Dates: end: 20100628
  3. KADIAN [Concomitant]
     Indication: PAIN
     Dosage: 30 MG, QD
     Dates: end: 20100628
  4. METHADONE [Concomitant]
     Indication: PAIN
     Dosage: 10 MG, QID
  5. ZANAFLEX [Concomitant]
     Indication: PAIN
     Dosage: UNK
  6. DANTRIUM [Concomitant]
     Indication: PAIN
     Dosage: UNK

REACTIONS (7)
  - ABDOMINAL DISCOMFORT [None]
  - ABNORMAL DREAMS [None]
  - ANXIETY [None]
  - ASTHENIA [None]
  - INSOMNIA [None]
  - PAIN [None]
  - WITHDRAWAL SYNDROME [None]
